FAERS Safety Report 16851168 (Version 1)
Quarter: 2019Q3

REPORT INFORMATION
  Report Type: Spontaneous
  Country: US (occurrence: US)
  Receive Date: 20190925
  Receipt Date: 20190925
  Transmission Date: 20191005
  Serious: Yes (Life-Threatening, Hospitalization, Disabling, Other)
  Sender: FDA-Public Use
  Company Number: US-009507513-1909USA008089

PATIENT
  Sex: Male

DRUGS (2)
  1. INLYTA [Concomitant]
     Active Substance: AXITINIB
  2. KEYTRUDA [Suspect]
     Active Substance: PEMBROLIZUMAB
     Indication: RENAL CANCER
     Dosage: UNK
     Dates: start: 20190718

REACTIONS (4)
  - Myocarditis [Not Recovered/Not Resolved]
  - Hepatitis [Not Recovered/Not Resolved]
  - Dependence on respirator [Not Recovered/Not Resolved]
  - Myelitis [Not Recovered/Not Resolved]

NARRATIVE: CASE EVENT DATE: 201909
